FAERS Safety Report 18481196 (Version 4)
Quarter: 2021Q3

REPORT INFORMATION
  Report Type: Spontaneous
  Country: US (occurrence: US)
  Receive Date: 20201109
  Receipt Date: 20210827
  Transmission Date: 20211014
  Serious: Yes (Death)
  Sender: FDA-Public Use
  Company Number: US-RARE DISEASE THERAPEUTICS, INC.-2093729

PATIENT
  Age: 67 Year
  Sex: Male
  Weight: 90 kg

DRUGS (37)
  1. SODIUM CHLORIDE. [Concomitant]
     Active Substance: SODIUM CHLORIDE
  2. FENTANYL. [Concomitant]
     Active Substance: FENTANYL
     Route: 042
  3. MIDAZOLAM. [Concomitant]
     Active Substance: MIDAZOLAM
     Route: 042
  4. CALCIUM CHLORIDE. [Concomitant]
     Active Substance: CALCIUM CHLORIDE
  5. ALBUMIN [Concomitant]
     Active Substance: ALBUMIN HUMAN
  6. INSULIN [Concomitant]
     Active Substance: INSULIN NOS
  7. DEXTROSE. [Concomitant]
     Active Substance: DEXTROSE
     Route: 042
  8. ACETAMINOPHEN. [Concomitant]
     Active Substance: ACETAMINOPHEN
     Route: 042
  9. BACITRACIN OINTMENT [Concomitant]
     Active Substance: BACITRACIN
     Route: 061
  10. VASOPRESSIN. [Concomitant]
     Active Substance: VASOPRESSIN
     Route: 042
  11. VECURONIUM [Concomitant]
     Active Substance: VECURONIUM BROMIDE
  12. PRIMASOL CRRT [Concomitant]
     Route: 042
  13. PIPERACILLIN AND TAZOBACTAM [Concomitant]
     Active Substance: PIPERACILLIN SODIUM\TAZOBACTAM SODIUM
  14. VANCOMYCIN [Concomitant]
     Active Substance: VANCOMYCIN
  15. CALCIUM GLUCONATE. [Concomitant]
     Active Substance: CALCIUM GLUCONATE
  16. CITRATE DEXTROSE [Concomitant]
  17. ARGATROBAN. [Concomitant]
     Active Substance: ARGATROBAN
     Route: 042
  18. NOREPINEPHRINE. [Concomitant]
     Active Substance: NOREPINEPHRINE
     Route: 042
  19. EPINEPHRINE. [Concomitant]
     Active Substance: EPINEPHRINE
     Route: 042
  20. THIAMINE. [Concomitant]
     Active Substance: THIAMINE
  21. CISATRACURIUM. [Concomitant]
     Active Substance: CISATRACURIUM
     Route: 042
  22. DIPHENHYDRAMINE. [Concomitant]
     Active Substance: DIPHENHYDRAMINE
  23. KETAMINE [Concomitant]
     Active Substance: KETAMINE
     Route: 042
  24. CALCIUM [Concomitant]
     Active Substance: CALCIUM
  25. LORAZEPAM. [Concomitant]
     Active Substance: LORAZEPAM
  26. CROFAB [Suspect]
     Active Substance: CROTALIDAE POLYVALENT IMMUNE FAB (OVINE)
     Route: 042
  27. HYDROCORTISONE. [Concomitant]
     Active Substance: HYDROCORTISONE
  28. SODIUM BICARB [Concomitant]
     Active Substance: SODIUM BICARBONATE
     Route: 042
  29. FOLIC ACID. [Concomitant]
     Active Substance: FOLIC ACID
  30. CHLORHEXIDINE [Concomitant]
     Active Substance: CHLORHEXIDINE
  31. FAMOTIDINE. [Concomitant]
     Active Substance: FAMOTIDINE
  32. ANAVIP [Suspect]
     Active Substance: PIT VIPER (CROTALINAE) IMMUNE GLOBULIN ANTIVENIN (EQUINE)
     Indication: SNAKE BITE
     Route: 042
     Dates: start: 20201019, end: 20201020
  33. PLASMALYTE [Concomitant]
     Active Substance: ELECTROLYTES NOS
     Route: 042
  34. HEPARIN [Concomitant]
     Active Substance: HEPARIN SODIUM
     Route: 042
  35. PANTOPRAZOLE [Concomitant]
     Active Substance: PANTOPRAZOLE
  36. METHYLENE BLUE. [Concomitant]
     Active Substance: METHYLENE BLUE
     Route: 042
  37. DEXAMETHASONE. [Concomitant]
     Active Substance: DEXAMETHASONE

REACTIONS (1)
  - Death [None]
